FAERS Safety Report 5029416-X (Version None)
Quarter: 2006Q2

REPORT INFORMATION
  Report Type: 
  Country: None (occurrence: None)
  Receive Date: 20060613
  Receipt Date: 20060601
  Transmission Date: 20061013
  Serious: Yes (Hospitalization, Other)
  Sender: FDA-Public Use
  Company Number: 2006026065

PATIENT
  Age: 65 Year
  Sex: Female
  Weight: 59 kg

DRUGS (5)
  1. AROMASIN [Suspect]
     Indication: BREAST CANCER METASTATIC
     Dosage: ORAL
     Route: 048
     Dates: start: 20050331
  2. METOPROLOL SUCCINATE [Concomitant]
  3. DOLORMIN (IBUPROFEN LYSINATE) [Concomitant]
  4. ZOMETA [Concomitant]
  5. IBUPROFEN [Concomitant]

REACTIONS (5)
  - MALIGNANT PLEURAL EFFUSION [None]
  - METASTASES TO PLEURA [None]
  - OESOPHAGEAL STENOSIS [None]
  - PNEUMONIA ASPIRATION [None]
  - RADIATION INJURY [None]
